FAERS Safety Report 26044795 (Version 2)
Quarter: 2025Q4

REPORT INFORMATION
  Report Type: Report from Study
  Country: CN (occurrence: CN)
  Receive Date: 20251114
  Receipt Date: 20251121
  Transmission Date: 20260117
  Serious: Yes (Death, Other)
  Sender: SANOFI AVENTIS
  Company Number: CN-SA-2025SA337686

PATIENT
  Age: 20 Year
  Sex: Male

DRUGS (1)
  1. AGALSIDASE BETA [Suspect]
     Active Substance: AGALSIDASE BETA
     Indication: Fabry^s disease
     Dosage: 45 MG, QOW
     Route: 041
     Dates: start: 20230721, end: 20251022

REACTIONS (1)
  - Cerebral haemorrhage [Fatal]

NARRATIVE: CASE EVENT DATE: 20251107
